FAERS Safety Report 18701169 (Version 1)
Quarter: 2021Q1

REPORT INFORMATION
  Report Type: Spontaneous
  Country: US (occurrence: US)
  Receive Date: 20210105
  Receipt Date: 20210105
  Transmission Date: 20210419
  Serious: Yes (Other)
  Sender: FDA-Public Use
  Company Number: US-MYLANLABS-2020M1106980

PATIENT
  Age: 75 Year
  Sex: Female

DRUGS (1)
  1. PREDNISONE. [Suspect]
     Active Substance: PREDNISONE
     Indication: COLITIS MICROSCOPIC
     Dosage: 40 MILLIGRAM, QD
     Route: 065

REACTIONS (2)
  - Drug ineffective [Unknown]
  - Drug intolerance [Unknown]
